FAERS Safety Report 19913010 (Version 1)
Quarter: 2021Q4

REPORT INFORMATION
  Report Type: Spontaneous
  Country: KR (occurrence: KR)
  Receive Date: 20211004
  Receipt Date: 20211004
  Transmission Date: 20220304
  Serious: Yes (Hospitalization)
  Sender: FDA-Public Use
  Company Number: KR-VIIV HEALTHCARE LIMITED-KR2021APC203154

PATIENT
  Age: 41 Year
  Sex: Male
  Weight: 88 kg

DRUGS (9)
  1. KIVEXA [Suspect]
     Active Substance: ABACAVIR SULFATE\LAMIVUDINE
     Indication: HIV infection
     Dosage: 1 MG, QD
     Route: 048
     Dates: start: 20120713
  2. ALPRAZOLAM [Concomitant]
     Active Substance: ALPRAZOLAM
     Indication: Personality disorder
     Dosage: UNK, QD
     Route: 048
     Dates: start: 20151023
  3. AMBROXOL [Concomitant]
     Active Substance: AMBROXOL
     Indication: Bronchitis chronic
     Dosage: UNK, QD
     Route: 048
     Dates: start: 20150811
  4. ATAZANAVIR [Concomitant]
     Active Substance: ATAZANAVIR
     Indication: HIV infection
     Dosage: UNK, QD
     Route: 048
     Dates: start: 20120117
  5. CALCIUM CARBONATE [Concomitant]
     Active Substance: CALCIUM CARBONATE
     Indication: Product used for unknown indication
     Dosage: UNK, QD
     Route: 048
     Dates: start: 20150331
  6. EBASTINE [Concomitant]
     Active Substance: EBASTINE
     Indication: Rhinitis allergic
     Dosage: UNK, QD
     Route: 048
     Dates: start: 20150811
  7. LEVOCETIRIZINE [Concomitant]
     Active Substance: LEVOCETIRIZINE
     Indication: Rhinitis allergic
     Dosage: UNK, QD
     Route: 048
     Dates: start: 20150811
  8. OLANZAPINE [Concomitant]
     Active Substance: OLANZAPINE
     Indication: Personality disorder
     Dosage: UNK, QD
     Route: 048
     Dates: start: 20120906
  9. VALPROIC ACID [Concomitant]
     Active Substance: VALPROIC ACID
     Indication: Personality disorder
     Dosage: UNK, QD
     Route: 048
     Dates: start: 20130207

REACTIONS (2)
  - Pyrexia [Recovered/Resolved]
  - Influenza like illness [Recovered/Resolved]

NARRATIVE: CASE EVENT DATE: 20151222
